FAERS Safety Report 4365049-6 (Version None)
Quarter: 2004Q2

REPORT INFORMATION
  Report Type: 
  Country: None (occurrence: None)
  Receive Date: 20040521
  Receipt Date: 20040506
  Transmission Date: 20050107
  Serious: Yes (Hospitalization)
  Sender: FDA-Public Use
  Company Number: S04-USA-02793-01

PATIENT
  Age: 75 Year
  Sex: Female

DRUGS (2)
  1. NAMENDA [Suspect]
     Indication: DEMENTIA ALZHEIMER'S TYPE
     Dates: end: 20040503
  2. NAMENDA [Suspect]
     Indication: DEMENTIA ALZHEIMER'S TYPE
     Dates: start: 20040501

REACTIONS (2)
  - ATRIAL FIBRILLATION [None]
  - ATRIAL FLUTTER [None]
